FAERS Safety Report 5146206-8 (Version None)
Quarter: 2006Q4

REPORT INFORMATION
  Report Type: 
  Country: None (occurrence: None)
  Receive Date: 20061106
  Receipt Date: 20061106
  Transmission Date: 20070319
  Serious: Yes (Life-Threatening, Hospitalization)
  Sender: FDA-Public Use
  Company Number: None

PATIENT
  Age: 53 Year
  Sex: Male
  Weight: 86.1834 kg

DRUGS (1)
  1. CYMBALTA [Suspect]
     Indication: DEPRESSION
     Dosage: DAILY PO
     Route: 048
     Dates: start: 20061014, end: 20061030

REACTIONS (2)
  - PSYCHOTIC DISORDER [None]
  - SUICIDE ATTEMPT [None]
